FAERS Safety Report 19352427 (Version 2)
Quarter: 2021Q3

REPORT INFORMATION
  Report Type: Spontaneous
  Country: CZ (occurrence: CZ)
  Receive Date: 20210531
  Receipt Date: 20210831
  Transmission Date: 20211014
  Serious: Yes (Hospitalization, Other)
  Sender: FDA-Public Use
  Company Number: CZ-BRISTOL-MYERS SQUIBB COMPANY-BMS-2021-050852

PATIENT
  Age: 78 Year
  Sex: Male

DRUGS (1)
  1. NIVOLUMAB [Suspect]
     Active Substance: NIVOLUMAB
     Indication: SQUAMOUS CELL CARCINOMA
     Dosage: 240 MILLIGRAM, Q2WK
     Route: 041
     Dates: start: 20180823, end: 20210219

REACTIONS (8)
  - Respiratory tract infection viral [Unknown]
  - Decreased appetite [Recovered/Resolved]
  - Leukopenia [Unknown]
  - Fatigue [Unknown]
  - Blood creatinine increased [Unknown]
  - Dyspnoea exertional [Unknown]
  - Blood thyroid stimulating hormone increased [Unknown]
  - Hypercalcaemia [Unknown]

NARRATIVE: CASE EVENT DATE: 201905
